FAERS Safety Report 4316351-5 (Version None)
Quarter: 2004Q1

REPORT INFORMATION
  Report Type: 
  Country: None (occurrence: None)
  Receive Date: 20040310
  Receipt Date: 20030204
  Transmission Date: 20041129
  Serious: Yes (Other)
  Sender: FDA-Public Use
  Company Number: HQWYE342912FEB03

PATIENT
  Sex: Male

DRUGS (4)
  1. PROTONIX [Suspect]
     Dosage: 40 MG, ORAL
     Route: 048
     Dates: start: 20020101, end: 20020101
  2. DEPAKOTE [Suspect]
  3. KLONOPIN [Suspect]
  4. TOPAMAX [Suspect]

REACTIONS (3)
  - CONFUSIONAL STATE [None]
  - DEPRESSED LEVEL OF CONSCIOUSNESS [None]
  - DRUG INTERACTION [None]
